FAERS Safety Report 15324908 (Version 2)
Quarter: 2018Q3

REPORT INFORMATION
  Report Type: Spontaneous
  Country: SE (occurrence: SE)
  Receive Date: 20180828
  Receipt Date: 20180924
  Transmission Date: 20181010
  Serious: Yes (Other)
  Sender: FDA-Public Use
  Company Number: SE-BAYER-2018-159310

PATIENT
  Age: 26 Year
  Sex: Female

DRUGS (1)
  1. KYLEENA [Suspect]
     Active Substance: LEVONORGESTREL
     Dosage: 17.5 MCG/24HR, CONT
     Route: 015
     Dates: start: 20170809, end: 20180709

REACTIONS (4)
  - Device breakage [None]
  - Wrong technique in device usage process [None]
  - Device dislocation [Recovered/Resolved]
  - Complication of device removal [None]

NARRATIVE: CASE EVENT DATE: 201807
